FAERS Safety Report 16808880 (Version 1)
Quarter: 2019Q3

REPORT INFORMATION
  Report Type: Other
  Country: GB (occurrence: GB)
  Receive Date: 20190916
  Receipt Date: 20190916
  Transmission Date: 20191005
  Serious: Yes (Disabling)
  Sender: FDA-Public Use
  Company Number: GB-EMCURE PHARMACEUTICALS LTD-2019-EPL-0669

PATIENT
  Age: 77 Year
  Sex: Female
  Weight: 83 kg

DRUGS (29)
  1. RANITIDINE. [Suspect]
     Active Substance: RANITIDINE
     Indication: PRODUCT USED FOR UNKNOWN INDICATION
     Dosage: 300 MILLIGRAM DAILY
     Dates: start: 20190708
  2. ALVERINE CITRATE [Concomitant]
     Active Substance: ALVERINE CITRATE
     Dosage: AS DIRECTED
     Dates: start: 20190305
  3. AMOXICILLIN. [Concomitant]
     Active Substance: AMOXICILLIN
     Dosage: 3 DOSAGE FORM DAILY
     Dates: start: 20190617, end: 20190622
  4. IRBESARTAN. [Concomitant]
     Active Substance: IRBESARTAN
     Dosage: 1 DOSAGE FORM DAILY
     Dates: start: 20190305
  5. TRAMADOL. [Concomitant]
     Active Substance: TRAMADOL
     Dosage: 1 DOSAGE FORM, 3-4 TIMES A DAY
     Dates: start: 20190709, end: 20190806
  6. PARACETAMOL [Concomitant]
     Active Substance: ACETAMINOPHEN
     Dosage: TAKE ONE OR TWO TABLETS UP TO FOUR TIMES A DAY
     Dates: start: 20190305
  7. AMLODIPINE [Concomitant]
     Active Substance: AMLODIPINE BESYLATE
     Dosage: 1 DOSAGE FORM  DAILY
     Dates: start: 20190305
  8. PROCHLORPERAZINE. [Concomitant]
     Active Substance: PROCHLORPERAZINE
     Dosage: 3 DOSAGE FORM DAILY
     Dates: start: 20190305
  9. ZAPAIN [Concomitant]
     Active Substance: ACETAMINOPHEN\CODEINE PHOSPHATE
     Dosage: TAKE 1 OR 2 4 TIMES/DAY
     Dates: start: 20190305
  10. CETIRIZINE [Concomitant]
     Active Substance: CETIRIZINE HYDROCHLORIDE
     Dosage: 1 DOSAGE FORM DAILY
     Dates: start: 20190305
  11. ACETYLSALICYLIC ACID [Concomitant]
     Active Substance: ASPIRIN
     Dosage: 1 DOSAGE FORM DAILY
     Dates: start: 20190305
  12. EMPAGLIFLOZIN [Concomitant]
     Active Substance: EMPAGLIFLOZIN
     Dosage: 1 DOSAGE FORM DAILY
     Dates: start: 20190305
  13. ACIDEX                             /01521901/ [Concomitant]
     Active Substance: CALCIUM CARBONATE\SODIUM ALGINATE\SODIUM BICARBONATE
     Dosage: 10 MILLILITER, PRN, 4 TIMES/DAY
     Dates: start: 20190618, end: 20190630
  14. CHLORPHENAMINE [Concomitant]
     Active Substance: CHLORPHENIRAMINE MALEATE
     Dosage: 1 DOSAGE FORM, TAKE ONE EVERY 4-6 HOURS AS DIRECTED
     Dates: start: 20190819
  15. CARBOCISTEINE [Concomitant]
     Active Substance: CARBOCYSTEINE
     Dosage: 2 DOSAGE FORM DAILY
     Dates: start: 20190305
  16. ALGINIC ACID [Concomitant]
     Active Substance: ALGINIC ACID
     Dosage: 10ML-20ML, QID
     Dates: start: 20190722, end: 20190801
  17. ATORVASTATIN [Concomitant]
     Active Substance: ATORVASTATIN
     Dosage: 1 DOSAGE FORM DAILY
     Dates: start: 20190305
  18. FLUCONAZOLE. [Concomitant]
     Active Substance: FLUCONAZOLE
     Dosage: 1 DOSAGE FORM, AS DIRECTED
     Dates: start: 20190731, end: 20190801
  19. CLOTRIMAZOLE. [Concomitant]
     Active Substance: CLOTRIMAZOLE
     Dosage: APPLY 2-3 TIMES/DAY
     Dates: start: 20190731
  20. METOCLOPRAMIDE. [Concomitant]
     Active Substance: METOCLOPRAMIDE
     Dosage: 3 DOSAGE FORM DAILY
     Dates: start: 20190624, end: 20190629
  21. EVOREL [Concomitant]
     Dosage: AS DIRECTED, METERED DOSE INHALER
     Dates: start: 20190305
  22. DICLOFENAC DIETHYLAMINE [Concomitant]
     Active Substance: DICLOFENAC DIETHYLAMINE
     Dosage: 1 DOSAGE FORM, PRN,  APPLY 3 TIMES/DAY
     Dates: start: 20190305
  23. VENTOLIN [Concomitant]
     Active Substance: ALBUTEROL SULFATE
     Dosage: 2 DOSAGE FORM, PRN
     Route: 055
     Dates: start: 20190305
  24. DIAZEPAM. [Concomitant]
     Active Substance: DIAZEPAM
     Dosage: 1 DOSAGE FORM, DAILY (AT NIGHT)
     Dates: start: 20190522, end: 20190523
  25. ESOMEPRAZOLE. [Concomitant]
     Active Substance: ESOMEPRAZOLE MAGNESIUM
     Dosage: 2 DOSAGE FORM DAILY
     Dates: start: 20190522
  26. PIROXICAM. [Concomitant]
     Active Substance: PIROXICAM
     Dosage: USE AS DIRECTED
     Dates: start: 20190305
  27. CETRABEN                           /01690401/ [Concomitant]
     Dosage: USE AS MOISTURISER
     Dates: start: 20190819
  28. QUININE [Concomitant]
     Active Substance: QUININE
     Dosage: 1 DOSAGE FORM, DAILY (EACH NIGHT)
     Dates: start: 20190305
  29. CLENIL MODULITE [Concomitant]
     Active Substance: BECLOMETHASONE DIPROPIONATE
     Dosage: 2 DOSAGE FORM DAILY
     Route: 055
     Dates: start: 20190305

REACTIONS (1)
  - Pruritus generalised [Not Recovered/Not Resolved]

NARRATIVE: CASE EVENT DATE: 20190819
